FAERS Safety Report 12092312 (Version 1)
Quarter: 2016Q1

REPORT INFORMATION
  Report Type: Spontaneous
  Country: US (occurrence: None)
  Receive Date: 20160217
  Receipt Date: 20160217
  Transmission Date: 20160526
  Serious: No
  Sender: FDA-Public Use
  Company Number: None

PATIENT
  Age: 84 Year
  Sex: Female

DRUGS (3)
  1. SOVALDI [Suspect]
     Active Substance: SOFOSBUVIR
     Indication: HEPATITIS
     Dosage: 400MG TAB 1 TAB QD ORAL
     Route: 048
     Dates: start: 20160113
  2. RIBASPHERE [Suspect]
     Active Substance: RIBAVIRIN
     Indication: HEPATITIS
     Dosage: 200MG TAB 2 TAB QD ORAL
     Route: 048
     Dates: start: 20160118, end: 20160202
  3. DAKLINZA [Concomitant]
     Active Substance: DACLATASVIR

REACTIONS (2)
  - Infection [None]
  - Fatigue [None]

NARRATIVE: CASE EVENT DATE: 20160202
